FAERS Safety Report 9449825 (Version 2)
Quarter: 2013Q4

REPORT INFORMATION
  Report Type: Report from Study
  Country: AU (occurrence: AU)
  Receive Date: 20130809
  Receipt Date: 20131017
  Transmission Date: 20140711
  Serious: Yes (Disabling, Other)
  Sender: FDA-Public Use
  Company Number: PHHY2013AU085588

PATIENT
  Age: 75 Year
  Sex: Female
  Weight: 64.6 kg

DRUGS (10)
  1. ACLASTA [Suspect]
     Dosage: 5 MG, UNK
     Route: 042
     Dates: start: 20120626
  2. ACLASTA [Suspect]
     Dosage: 5 MG, UNK
     Route: 042
     Dates: start: 20130807
  3. TRAMADOL [Concomitant]
     Dosage: UNK UKN, 100 MG NOCTE PLUS 50 MG TDS
     Route: 048
  4. CITRACAL + D [Concomitant]
     Dosage: 2 DF, NOCTE
     Route: 048
  5. KALMA [Concomitant]
     Dosage: 1 MG, NOCTE
     Route: 048
  6. LASIX [Concomitant]
     Dosage: 40 MG, DAILY
     Route: 048
  7. MIANSERIN [Concomitant]
     Dosage: 80 MG, NOCTE
     Route: 048
  8. NEXIUM 1-2-3 [Concomitant]
     Dosage: 40 MG, DAILY
     Route: 048
  9. PANADOL OSTEO [Concomitant]
     Dosage: UNK UKN,1 TO 2 TAB TDS
     Route: 048
  10. VENTOLIN                           /00942701/ [Concomitant]
     Dosage: UNK UKN, 1 PUFF MANE

REACTIONS (2)
  - Radius fracture [Recovered/Resolved]
  - Fall [Recovered/Resolved]
